FAERS Safety Report 15287570 (Version 1)
Quarter: 2018Q3

REPORT INFORMATION
  Report Type: Spontaneous
  Country: FR (occurrence: FR)
  Receive Date: 20180817
  Receipt Date: 20180817
  Transmission Date: 20181010
  Serious: Yes (Death, Other)
  Sender: FDA-Public Use
  Company Number: FR-TEVA-2018-FR-940969

PATIENT
  Age: 41 Year
  Sex: Male

DRUGS (4)
  1. BUPRENORPHINE. [Suspect]
     Active Substance: BUPRENORPHINE
     Route: 065
  2. DIAZEPAM. [Suspect]
     Active Substance: DIAZEPAM
     Route: 065
  3. COCAINE [Suspect]
     Active Substance: COCAINE
     Route: 065
  4. NORDIAZEPAM [Interacting]
     Active Substance: NORDAZEPAM
     Route: 065

REACTIONS (2)
  - Death [Fatal]
  - Drug interaction [Unknown]
